FAERS Safety Report 23558466 (Version 2)
Quarter: 2024Q1

REPORT INFORMATION
  Report Type: Spontaneous
  Country: DE (occurrence: DE)
  Receive Date: 20240223
  Receipt Date: 20240315
  Transmission Date: 20240410
  Serious: Yes (Other)
  Sender: FDA-Public Use
  Company Number: DE-SUN PHARMACEUTICAL INDUSTRIES LTD-2024RR-432183

PATIENT
  Age: 69 Year
  Sex: Male

DRUGS (7)
  1. TILDRAKIZUMAB [Suspect]
     Active Substance: TILDRAKIZUMAB
     Indication: Product used for unknown indication
     Dosage: 100 MILLIGRAM, LAST INJECTION IN MID OF DECEMBER 2023
     Route: 058
  2. SALBUHEXAL [Concomitant]
     Active Substance: ALBUTEROL
     Indication: Diaphragmatic disorder
     Dosage: UNK, TWO TIMES DAILY
     Dates: start: 202310
  3. LAVENTAIR [Concomitant]
     Indication: Diaphragmatic disorder
     Dosage: UNK, 2X DAILY
     Dates: start: 202310
  4. SHINGRIX [Concomitant]
     Active Substance: RECOMBINANT VARICELLA ZOSTER VIRUS (VZV) GLYCOPROTEIN E
     Indication: Herpes zoster immunisation
     Dosage: UNK
     Route: 065
  5. PREDNISOLONE [Concomitant]
     Active Substance: PREDNISOLONE
     Indication: Product used for unknown indication
     Dosage: 20 MILLIGRAM
     Route: 065
  6. VALSARTAN [Concomitant]
     Active Substance: VALSARTAN
     Indication: Hypertension
     Dosage: 160 MILLIGRAM
     Route: 065
  7. AMLODIPINE [Concomitant]
     Active Substance: AMLODIPINE BESYLATE
     Indication: Hypertension
     Dosage: 5 MILLIGRAM
     Route: 065

REACTIONS (3)
  - Circulatory collapse [Recovered/Resolved]
  - Transient ischaemic attack [Unknown]
  - Thinking abnormal [Unknown]

NARRATIVE: CASE EVENT DATE: 20240131
